FAERS Safety Report 6073849-X (Version None)
Quarter: 2009Q1

REPORT INFORMATION
  Report Type: 
  Country: None (occurrence: None)
  Receive Date: 20090211
  Receipt Date: 20090205
  Transmission Date: 20090719
  Serious: Yes (Other)
  Sender: FDA-Public Use
  Company Number: US-AMGEN-US332184

PATIENT
  Sex: Female

DRUGS (7)
  1. NPLATE [Suspect]
     Indication: IDIOPATHIC THROMBOCYTOPENIC PURPURA
     Dates: start: 20081117
  2. TYLENOL [Concomitant]
  3. BENICAR [Concomitant]
  4. HYDROCHLOROTHIAZIDE [Concomitant]
  5. AMLODIPINE [Concomitant]
  6. ALENDRONATE SODIUM [Concomitant]
  7. CLARINEX [Concomitant]

REACTIONS (5)
  - ARTHRALGIA [None]
  - FLATULENCE [None]
  - HYPOAESTHESIA [None]
  - PAIN IN EXTREMITY [None]
  - PLATELET COUNT DECREASED [None]
